FAERS Safety Report 5363150-1 (Version None)
Quarter: 2007Q2

REPORT INFORMATION
  Report Type: 
  Country: None (occurrence: None)
  Receive Date: 20070620
  Receipt Date: 20070609
  Transmission Date: 20071010
  Serious: Yes (Other)
  Sender: FDA-Public Use
  Company Number: PHHO2007MX09960

PATIENT
  Sex: Female

DRUGS (4)
  1. CO-DIOVAN [Suspect]
     Indication: HYPERTENSION
     Dosage: 1/2 TABLET (160/25MG)
     Route: 048
     Dates: start: 20060601, end: 20060801
  2. CO-DIOVAN [Suspect]
     Dosage: UNK
     Route: 048
     Dates: end: 20070601
  3. CO-DIOVAN [Suspect]
     Dosage: NO TREATMENT
     Dates: start: 20060801
  4. CO-DIOVAN [Suspect]
     Dosage: 80/12.5MG PER DAY
     Route: 048
     Dates: start: 20070601

REACTIONS (3)
  - ANGINA PECTORIS [None]
  - DEPRESSION [None]
  - DRUG INEFFECTIVE [None]
